FAERS Safety Report 15845469 (Version 1)
Quarter: 2019Q1

REPORT INFORMATION
  Report Type: Report from Study
  Country: None (occurrence: GB)
  Receive Date: 20190119
  Receipt Date: 20190119
  Transmission Date: 20190417
  Serious: Yes (Death, Hospitalization)
  Sender: FDA-Public Use
  Company Number: GB-ABBVIE-18K-167-2521575-00

PATIENT
  Sex: Female

DRUGS (1)
  1. HUMIRA [Suspect]
     Active Substance: ADALIMUMAB
     Indication: RHEUMATOID ARTHRITIS
     Route: 058
     Dates: start: 20080820, end: 20091015

REACTIONS (5)
  - Cholecystitis [Fatal]
  - Biliary sepsis [Fatal]
  - Felty^s syndrome [Unknown]
  - Ulcer [Unknown]
  - Wound [Unknown]

NARRATIVE: CASE EVENT DATE: 20170220
